FAERS Safety Report 9261777 (Version 4)
Quarter: 2013Q2

REPORT INFORMATION
  Report Type: Spontaneous
  Country: US (occurrence: US)
  Receive Date: 20130429
  Receipt Date: 20130618
  Transmission Date: 20140414
  Serious: Yes (Hospitalization, Other)
  Sender: FDA-Public Use
  Company Number: US-GILEAD-2013-0074245

PATIENT
  Sex: Female

DRUGS (4)
  1. LETAIRIS [Suspect]
     Indication: PULMONARY HYPERTENSION
     Dosage: 10 MG, QD
     Route: 048
     Dates: start: 20130227
  2. LETAIRIS [Suspect]
     Indication: CONNECTIVE TISSUE DISORDER
  3. EPOPROSTENOL [Concomitant]
  4. REVATIO [Concomitant]

REACTIONS (4)
  - Pulmonary hypertension [Unknown]
  - Cardiac failure [Unknown]
  - Fluid overload [Unknown]
  - Fluid retention [Unknown]
